FAERS Safety Report 6690184-7 (Version None)
Quarter: 2010Q2

REPORT INFORMATION
  Report Type: 
  Country: None (occurrence: None)
  Receive Date: 20100421
  Receipt Date: 20100415
  Transmission Date: 20101027
  Serious: Yes (Hospitalization)
  Sender: FDA-Public Use
  Company Number: ES-BAYER-201020911GPV

PATIENT
  Age: 53 Year
  Sex: Male

DRUGS (6)
  1. ASPIRIN [Suspect]
     Route: 048
     Dates: end: 20090710
  2. ENALAPRIL MALEATE [Concomitant]
  3. METFORMIN [Concomitant]
  4. NORVASC [Concomitant]
  5. SIMVASTATIN [Concomitant]
  6. ACTOS [Concomitant]

REACTIONS (4)
  - DUODENAL ULCER [None]
  - GASTRIC ULCER [None]
  - HYPERTENSION [None]
  - UPPER GASTROINTESTINAL HAEMORRHAGE [None]
